FAERS Safety Report 6055222-3 (Version None)
Quarter: 2009Q1

REPORT INFORMATION
  Report Type: 
  Country: None (occurrence: None)
  Receive Date: 20090122
  Receipt Date: 20090107
  Transmission Date: 20090719
  Serious: No
  Sender: FDA-Public Use
  Company Number: LIT-09-0001

PATIENT
  Age: 19 Year
  Sex: Male

DRUGS (3)
  1. AMANTADINE HCL [Suspect]
     Indication: INFLUENZA LIKE ILLNESS
     Dosage: 100MG TWICE DAILY ORAL
     Route: 048
  2. VENLAFAXINE HCL [Concomitant]
  3. QUETIAPINE FUMARATE [Concomitant]

REACTIONS (3)
  - ASTHENIA [None]
  - HALLUCINATION, AUDITORY [None]
  - HALLUCINATION, VISUAL [None]
